FAERS Safety Report 5806294-X (Version None)
Quarter: 2008Q3

REPORT INFORMATION
  Report Type: 
  Country: None (occurrence: None)
  Receive Date: 20080710
  Receipt Date: 20080704
  Transmission Date: 20090109
  Serious: Yes (Death)
  Sender: FDA-Public Use
  Company Number: BG-WYE-H04847408

PATIENT
  Sex: Female
  Weight: 65 kg

DRUGS (7)
  1. RAPAMUNE [Suspect]
     Indication: RENAL TRANSPLANT
     Dates: start: 20020521, end: 20040211
  2. RAPAMUNE [Suspect]
     Dates: start: 20040212, end: 20060501
  3. RAPAMUNE [Suspect]
     Dates: start: 20060502, end: 20071120
  4. RAPAMUNE [Suspect]
     Dates: start: 20071121
  5. MYFORTIC [Concomitant]
     Dosage: UNKNOWN
     Dates: start: 20060502, end: 20071120
  6. TACROLIMUS [Concomitant]
     Dosage: UNKNOWN
     Dates: start: 20061120, end: 20070516
  7. MYCOPHENOLATE MOFETIL [Concomitant]
     Dosage: UNKNOWN
     Dates: start: 20020528, end: 20060501

REACTIONS (1)
  - DEATH [None]
